FAERS Safety Report 6628454-0 (Version None)
Quarter: 2010Q1

REPORT INFORMATION
  Report Type: 
  Country: None (occurrence: None)
  Receive Date: 20100311
  Receipt Date: 20100301
  Transmission Date: 20100710
  Serious: Yes (Hospitalization)
  Sender: FDA-Public Use
  Company Number: JP-PFIZER INC-2010003507

PATIENT
  Age: 81 Year
  Sex: Male
  Weight: 67 kg

DRUGS (12)
  1. SUNITINIB MALATE [Suspect]
     Indication: HEPATIC NEOPLASM MALIGNANT
     Dosage: 37.5 MG, 1X/DAY
     Route: 048
     Dates: start: 20091029
  2. URSO 250 [Concomitant]
     Dosage: UNK
     Route: 048
  3. PHOSPHATIDYL CHOLINE [Concomitant]
     Dosage: UNK
     Route: 048
  4. PANALDINE [Concomitant]
     Route: 048
     Dates: end: 20100108
  5. GASTER [Concomitant]
     Dosage: UNK
     Route: 048
     Dates: start: 20091013
  6. LOCOID [Concomitant]
     Dosage: UNK
     Route: 061
     Dates: start: 20091126
  7. PASTARON [Concomitant]
     Dosage: UNK
     Route: 061
     Dates: start: 20091112
  8. HIRUDOID [Concomitant]
     Dosage: UNK
     Route: 061
     Dates: start: 20091112
  9. APHTASOLON [Concomitant]
     Dosage: UNK
     Route: 061
     Dates: start: 20091118
  10. PURSENNID [Concomitant]
     Dosage: UNK
     Route: 048
  11. MAGNESIUM OXIDE [Concomitant]
     Dosage: UNK
     Route: 048
  12. TRYPTANOL [Concomitant]
     Dosage: UNK
     Route: 048
     Dates: start: 20091216

REACTIONS (1)
  - CEREBRAL INFARCTION [None]
